FAERS Safety Report 7281515-8 (Version None)
Quarter: 2011Q1

REPORT INFORMATION
  Report Type: 
  Country: None (occurrence: None)
  Receive Date: 20110208
  Receipt Date: 20110203
  Transmission Date: 20110831
  Serious: Yes (Hospitalization)
  Sender: FDA-Public Use
  Company Number: ES-PFIZER INC-2011025493

PATIENT
  Age: 77 Year
  Sex: Female

DRUGS (6)
  1. DIGOXIN [Suspect]
     Indication: ATRIAL FIBRILLATION
     Dosage: UNK
     Dates: start: 20030101, end: 20100420
  2. COROPRES [Suspect]
     Indication: CARDIAC FAILURE CONGESTIVE
     Dosage: 6.25 MG, 2X/DAY
     Route: 048
     Dates: start: 20030101, end: 20100420
  3. ENALAPRIL MALEATE [Suspect]
     Indication: CARDIAC FAILURE CONGESTIVE
     Dosage: 10 MG, 2X/DAY
     Route: 048
     Dates: start: 20030101, end: 20100420
  4. SINTROM [Concomitant]
     Route: 048
  5. ALDACTONE [Suspect]
     Indication: CARDIAC FAILURE CONGESTIVE
     Dosage: 100 MG, 1X/DAY
     Route: 048
     Dates: start: 20090929, end: 20100420
  6. SEGURIL [Concomitant]
     Dosage: 40 MG, 2X/DAY
     Route: 048
     Dates: start: 20030101

REACTIONS (5)
  - CARDIAC FAILURE [None]
  - RENAL FAILURE ACUTE [None]
  - ATRIOVENTRICULAR BLOCK [None]
  - HYPERKALAEMIA [None]
  - DIARRHOEA [None]
